FAERS Safety Report 6304972-X (Version None)
Quarter: 2009Q3

REPORT INFORMATION
  Report Type: 
  Country: None (occurrence: None)
  Receive Date: 20090811
  Receipt Date: 20090729
  Transmission Date: 20100115
  Serious: Yes (Other)
  Sender: FDA-Public Use
  Company Number: US-MERCK-0907USA05285

PATIENT
  Age: 30 Year
  Sex: Female

DRUGS (4)
  1. MAXALT [Suspect]
     Indication: MIGRAINE
     Route: 048
  2. PRISTIQ [Suspect]
     Route: 048
     Dates: start: 20090629
  3. ORTHO TRI-CYCLEN [Concomitant]
     Route: 065
  4. PROGESTERONE [Concomitant]
     Route: 065

REACTIONS (1)
  - DRUG INTERACTION [None]
